FAERS Safety Report 9972239 (Version 1)
Quarter: 2014Q1

REPORT INFORMATION
  Report Type: Spontaneous
  Country: JP (occurrence: None)
  Receive Date: 20140304
  Receipt Date: 20140304
  Transmission Date: 20141002
  Serious: Yes (Hospitalization)
  Sender: FDA-Public Use
  Company Number: 2014HINLIT0179

PATIENT
  Age: 64 Year
  Sex: Female

DRUGS (1)
  1. LITHIUM (LITHIUM) UNKNOWN [Suspect]
     Indication: BIPOLAR DISORDER

REACTIONS (22)
  - Toxicity to various agents [None]
  - Cardiac arrest [None]
  - Quadriplegia [None]
  - Coma [None]
  - Wheezing [None]
  - Hyperthyroidism [None]
  - Diarrhoea [None]
  - Malaise [None]
  - Pyrexia [None]
  - Confusional state [None]
  - Disorientation [None]
  - Agitation [None]
  - Tachycardia [None]
  - Dehydration [None]
  - Somnolence [None]
  - Dysstasia [None]
  - Muscular weakness [None]
  - Pulmonary oedema [None]
  - Cardiomegaly [None]
  - Atrial fibrillation [None]
  - Renal impairment [None]
  - Cardio-respiratory arrest [None]
